FAERS Safety Report 6313045-1 (Version None)
Quarter: 2009Q3

REPORT INFORMATION
  Report Type: 
  Country: None (occurrence: None)
  Receive Date: 20090818
  Receipt Date: 20090430
  Transmission Date: 20100115
  Serious: No
  Sender: FDA-Public Use
  Company Number: US-BRISTOL-MYERS SQUIBB COMPANY-14609069

PATIENT
  Sex: Female

DRUGS (1)
  1. GLYBURIDE AND METFORMIN HYDROCHLORIDE [Suspect]

REACTIONS (2)
  - BLOOD GLUCOSE DECREASED [None]
  - GASTRIC DISORDER [None]
